FAERS Safety Report 8282978-1 (Version None)
Quarter: 2012Q2

REPORT INFORMATION
  Report Type: 
  Country: None (occurrence: None)
  Receive Date: 20120413
  Receipt Date: 20120329
  Transmission Date: 20120825
  Serious: Yes (Hospitalization, Other)
  Sender: FDA-Public Use
  Company Number: BR-ROCHE-718423

PATIENT
  Sex: Male
  Weight: 80 kg

DRUGS (22)
  1. ACTEMRA [Suspect]
     Indication: RHEUMATOID ARTHRITIS
     Dosage: FORM: INFUSION;12 INFUSIONS
     Route: 042
     Dates: start: 20091201, end: 20110104
  2. TRAMADOL HYDROCHLORIDE [Concomitant]
     Indication: PAIN
  3. PROTOS [Concomitant]
  4. KETOPROFEN [Concomitant]
  5. COMPLEXO B [Concomitant]
  6. CARBAMAZEPINE [Concomitant]
     Indication: CONVULSION
  7. PREDNISONE TAB [Concomitant]
  8. DEPURAN [Concomitant]
  9. METHOTREXATE [Concomitant]
     Dosage: 1 WEEK
  10. ALLOPURINOL [Concomitant]
  11. VITAMIN B COMPLEX CAP [Concomitant]
  12. OMEPRAZOLE [Concomitant]
  13. ACTEMRA [Suspect]
     Route: 042
  14. LISINOPRIL [Concomitant]
  15. RANITIDINE [Concomitant]
  16. LISINOPRIL [Concomitant]
  17. FOLIC ACID [Concomitant]
  18. CHLOROQUINE PHOSPHATE [Concomitant]
  19. FAMOTIDINE [Concomitant]
  20. TORSILAX [Concomitant]
     Indication: PAIN
  21. BENZBROMARONA [Concomitant]
     Dosage: DRUG REPORTED AS BENZOBROMARONA
  22. TRAMADOL HYDROCHLORIDE [Concomitant]

REACTIONS (17)
  - ASTHENIA [None]
  - ERYSIPELAS [None]
  - URINE ANALYSIS ABNORMAL [None]
  - DRUG INEFFECTIVE [None]
  - VARICOSE VEIN RUPTURED [None]
  - DIZZINESS POSTURAL [None]
  - DUODENAL ULCER [None]
  - HAEMORRHOIDS [None]
  - INFLAMMATION [None]
  - BLOOD URIC ACID INCREASED [None]
  - MACULE [None]
  - OROPHARYNGEAL PAIN [None]
  - BLOOD TEST ABNORMAL [None]
  - MYELOPATHY [None]
  - ARTHRALGIA [None]
  - RENAL IMPAIRMENT [None]
  - APHONIA [None]
